FAERS Safety Report 9134712 (Version 2)
Quarter: 2013Q4

REPORT INFORMATION
  Report Type: Report from Study
  Country: GB (occurrence: GB)
  Receive Date: 20130304
  Receipt Date: 20131002
  Transmission Date: 20140711
  Serious: Yes (Other)
  Sender: FDA-Public Use
  Company Number: GB-VERTEX PHARMACEUTICALS INC.-2013-002928

PATIENT
  Age: 60 Year
  Sex: Female

DRUGS (10)
  1. VX-950 (TELAPREVIR) [Suspect]
     Indication: HEPATITIS C
     Dosage: UNK
     Route: 048
     Dates: start: 20121213
  2. INTERFERON ALFA-2A [Suspect]
     Indication: HEPATITIS C
     Dosage: UNK
     Route: 058
     Dates: start: 20121213
  3. RIBAVIRIN [Suspect]
     Indication: HEPATITIS C
     Dosage: UNK
     Route: 048
     Dates: start: 20121213
  4. AMITRIPTYLINE [Concomitant]
  5. GLICLAZIDE [Concomitant]
  6. INSULIN [Concomitant]
  7. LORATADINE [Concomitant]
  8. METFORMIN [Concomitant]
  9. RAMIPRIL [Concomitant]
  10. TERBUTALINE [Concomitant]

REACTIONS (3)
  - Immune system disorder [Not Recovered/Not Resolved]
  - Neutropenia [Unknown]
  - Thrombocytopenia [Not Recovered/Not Resolved]
